FAERS Safety Report 5543265-5 (Version None)
Quarter: 2007Q4

REPORT INFORMATION
  Report Type: 
  Country: None (occurrence: None)
  Receive Date: 20071210
  Receipt Date: 20071128
  Transmission Date: 20080405
  Serious: Yes (Other)
  Sender: FDA-Public Use
  Company Number: US-AMGEN-QUU254542

PATIENT
  Sex: Female

DRUGS (2)
  1. ENBREL [Suspect]
     Indication: JUVENILE ARTHRITIS
     Route: 058
     Dates: start: 20070817, end: 20071106
  2. NABUMETONE [Concomitant]
     Dates: start: 20060925

REACTIONS (2)
  - ANXIETY [None]
  - SUICIDAL IDEATION [None]
